FAERS Safety Report 5161939-5 (Version None)
Quarter: 2006Q4

REPORT INFORMATION
  Report Type: 
  Country: None (occurrence: None)
  Receive Date: 20061130
  Receipt Date: 20061030
  Transmission Date: 20070319
  Serious: No
  Sender: FDA-Public Use
  Company Number: US-GLAXOSMITHKLINE-A0625371A

PATIENT
  Age: 28 Year
  Sex: Female

DRUGS (4)
  1. WELLBUTRIN XL [Suspect]
     Indication: DEPRESSION
     Dosage: 150MG PER DAY
     Route: 048
     Dates: start: 20061028
  2. VITAMIN E [Concomitant]
  3. FIBERCON [Concomitant]
  4. MULTI-VITAMIN [Concomitant]

REACTIONS (3)
  - CRYING [None]
  - DISORIENTATION [None]
  - DIZZINESS [None]
